FAERS Safety Report 21216104 (Version 1)
Quarter: 2022Q3

REPORT INFORMATION
  Report Type: Spontaneous
  Country: US (occurrence: None)
  Receive Date: 20220815
  Receipt Date: 20220815
  Transmission Date: 20221027
  Serious: Yes (Disabling)
  Sender: FDA-Public Use
  Company Number: None

PATIENT
  Sex: Female
  Weight: 49.95 kg

DRUGS (7)
  1. XIIDRA [Suspect]
     Active Substance: LIFITEGRAST
     Indication: Dry eye
     Dosage: FREQUENCY : TWICE A DAY;?
     Route: 047
     Dates: start: 20220808, end: 20220810
  2. LANTUS [Concomitant]
     Active Substance: INSULIN GLARGINE
  3. LOSARTAN [Concomitant]
     Active Substance: LOSARTAN
  4. CRESTOR [Concomitant]
     Active Substance: ROSUVASTATIN CALCIUM
  5. EYLEA [Concomitant]
     Active Substance: AFLIBERCEPT
  6. VITAMIN D [Concomitant]
     Active Substance: VITAMIN D NOS
  7. Eye vitamin [Concomitant]

REACTIONS (1)
  - Visual impairment [None]
